FAERS Safety Report 4358044-4 (Version None)
Quarter: 2004Q2

REPORT INFORMATION
  Report Type: 
  Country: None (occurrence: None)
  Receive Date: 20040510
  Receipt Date: 20040428
  Transmission Date: 20050107
  Serious: No
  Sender: FDA-Public Use
  Company Number: 03P-163-0218943-00

PATIENT
  Age: 44 Year
  Sex: Female

DRUGS (5)
  1. TRICOR [Suspect]
     Indication: BLOOD CHOLESTEROL ABNORMAL
     Dosage: PER ORAL
     Route: 048
     Dates: start: 20020307, end: 20020407
  2. LOCOID LIPOCREAM [Concomitant]
  3. GEMFIBROZIL [Concomitant]
  4. PANTOPRAZOLE [Concomitant]
  5. GLUCOPHAGE [Concomitant]

REACTIONS (13)
  - ARTHRALGIA [None]
  - ASTHENIA [None]
  - BLOOD ALBUMIN DECREASED [None]
  - BODY FAT DISORDER [None]
  - DRUG ERUPTION [None]
  - FATIGUE [None]
  - HEPATOCELLULAR DAMAGE [None]
  - INFLAMMATION [None]
  - MYALGIA [None]
  - PHARYNGOLARYNGEAL PAIN [None]
  - PYREXIA [None]
  - RASH [None]
  - SCAR [None]
